FAERS Safety Report 13065411 (Version 4)
Quarter: 2017Q1

REPORT INFORMATION
  Report Type: Spontaneous
  Country: US (occurrence: US)
  Receive Date: 20161227
  Receipt Date: 20170220
  Transmission Date: 20170428
  Serious: Yes (Other)
  Sender: FDA-Public Use
  Company Number: US-BAYER-2016-243651

PATIENT
  Age: 27 Year
  Sex: Female

DRUGS (2)
  1. SKYLA [Suspect]
     Active Substance: LEVONORGESTREL
     Indication: CONTRACEPTION
     Dosage: 14 MCG/24HR, CONT
     Route: 015
     Dates: start: 20150506, end: 20161215
  2. SKYLA [Suspect]
     Active Substance: LEVONORGESTREL
     Indication: PAIN MANAGEMENT

REACTIONS (4)
  - Endometriosis [Recovered/Resolved]
  - Abdominal pain lower [None]
  - Device dislocation [Recovered/Resolved]
  - Pelvic pain [Recovered/Resolved]

NARRATIVE: CASE EVENT DATE: 20150508
